FAERS Safety Report 9944818 (Version 1)
Quarter: 2014Q1

REPORT INFORMATION
  Report Type: Report from Study
  Country: US (occurrence: US)
  Receive Date: 20140303
  Receipt Date: 20140303
  Transmission Date: 20141002
  Serious: No
  Sender: FDA-Public Use
  Company Number: US-ABBVIE-13P-163-1055050-00

PATIENT
  Age: 65 Year
  Sex: Female

DRUGS (5)
  1. HUMIRA [Suspect]
     Indication: RHEUMATOID ARTHRITIS
     Dates: start: 201209
  2. AVAPRO [Concomitant]
     Indication: BLOOD PRESSURE
     Dosage: 150MG DAILY
  3. PREDNISONE [Concomitant]
     Indication: RHEUMATOID ARTHRITIS
     Dosage: 5MG DAILY
  4. CALTRATE OTC [Concomitant]
     Indication: VITAMIN SUPPLEMENTATION
  5. TYLENOL EXTRA STRENGTH [Concomitant]
     Indication: ARTHRALGIA

REACTIONS (1)
  - Rash [Not Recovered/Not Resolved]
